FAERS Safety Report 8016966-7 (Version None)
Quarter: 2012Q1

REPORT INFORMATION
  Report Type: 
  Country: None (occurrence: None)
  Receive Date: 20120102
  Receipt Date: 20111226
  Transmission Date: 20120608
  Serious: Yes (Disabling)
  Sender: FDA-Public Use
  Company Number: PHHY2011IT112811

PATIENT
  Sex: Male

DRUGS (2)
  1. ZOMETA [Suspect]
     Indication: MULTIPLE MYELOMA
     Dosage: UNK UKN, UNK
     Dates: start: 20050201, end: 20060201
  2. THALIDOMIDE [Concomitant]
     Dosage: UNK UKN, UNK
     Dates: start: 20050101

REACTIONS (2)
  - OSTEONECROSIS OF JAW [None]
  - FISTULA [None]
